FAERS Safety Report 5002358-1 (Version None)
Quarter: 2006Q2

REPORT INFORMATION
  Report Type: 
  Country: None (occurrence: None)
  Receive Date: 20060512
  Receipt Date: 20060427
  Transmission Date: 20061013
  Serious: Yes (Hospitalization)
  Sender: FDA-Public Use
  Company Number: IN200605000090

PATIENT
  Age: 70 Year
  Sex: Male

DRUGS (4)
  1. GEMCITE (GEMCITABINE HYDROCHLORIDE UNKNOWN FORMULATION) [Suspect]
     Indication: BLADDER CANCER
     Dates: start: 20060401, end: 20060401
  2. GLYNASE [Concomitant]
  3. DEXAMETHASONE TAB [Concomitant]
  4. ONDANSETRON HCL [Concomitant]

REACTIONS (2)
  - HYPOGLYCAEMIA [None]
  - LOSS OF CONSCIOUSNESS [None]
